FAERS Safety Report 24594039 (Version 1)
Quarter: 2024Q4

REPORT INFORMATION
  Report Type: Spontaneous
  Country: IT (occurrence: IT)
  Receive Date: 20241108
  Receipt Date: 20241108
  Transmission Date: 20250115
  Serious: Yes (Other)
  Sender: BAXTER
  Company Number: None

PATIENT
  Age: 54 Year
  Sex: Female
  Weight: 60 kg

DRUGS (5)
  1. CYCLOPHOSPHAMIDE [Suspect]
     Active Substance: CYCLOPHOSPHAMIDE
     Indication: Breast cancer female
     Dosage: EC 90 + PEMBROLIZUMAB EVERY 21 DAYS
     Route: 041
     Dates: start: 20240618, end: 20240821
  2. CARBOPLATIN [Suspect]
     Active Substance: CARBOPLATIN
     Dosage: THERAPEUTIC REGIMEN CARBOPLATIN AUC2 +TAXOL 80 DAYS 1,8,51 EVERY 28 + PEMBROLIZUMAB
     Route: 041
     Dates: start: 20240319, end: 20240519
  3. PACLITAXEL [Suspect]
     Active Substance: PACLITAXEL
     Dosage: UNK
     Route: 041
     Dates: start: 20240319, end: 20240519
  4. PEMBROLIZUMAB [Suspect]
     Active Substance: PEMBROLIZUMAB
     Indication: Breast cancer female
     Dosage: FROM 18/069/2024 [SIC] THE THERAPEUTIC REGIMEN IS CHANGED TO EC90 + PEMBROLIZUMAB
     Route: 041
     Dates: start: 20240319, end: 20240821
  5. ETOPOSIDE [Suspect]
     Active Substance: ETOPOSIDE
     Indication: Breast cancer female
     Dosage: EC 90 + PEMBROLIZUMAB EVERY 21 DAYS
     Route: 041
     Dates: start: 20240618, end: 20240824

REACTIONS (1)
  - Hypothyroidism [Recovering/Resolving]

NARRATIVE: CASE EVENT DATE: 20241009
